FAERS Safety Report 8346362-4 (Version None)
Quarter: 2012Q2

REPORT INFORMATION
  Report Type: 
  Country: None (occurrence: None)
  Receive Date: 20120509
  Receipt Date: 20120503
  Transmission Date: 20120825
  Serious: Yes (Other)
  Sender: FDA-Public Use
  Company Number: GB-AMGEN-GBRSP2011065367

PATIENT
  Age: 71 Year
  Sex: Female
  Weight: 54 kg

DRUGS (9)
  1. CALCIUM CARBONATE W/COLECALCIFEROL [Concomitant]
     Dosage: 800 IU, QD
  2. FOLIC ACID [Concomitant]
     Dosage: 5 MG, QD
  3. ASPIRIN [Concomitant]
     Dosage: UNK UNK, QD
  4. ACETAMINOPHEN [Concomitant]
     Dosage: 1000 MG, UNK
  5. TRAMADOL HCL [Concomitant]
     Dosage: 500 MG, TID
  6. PROLIA [Suspect]
     Indication: OSTEOPOROSIS
     Dosage: 60 MG, UNK
     Route: 030
     Dates: start: 20111019, end: 20111019
  7. FELODIPINE [Concomitant]
     Dosage: 10 MG, UNK
  8. PERINDOPRIL ERBUMINE [Concomitant]
     Dosage: 8 MG, UNK
  9. ACE INHIBITORS [Concomitant]

REACTIONS (3)
  - HYPERSENSITIVITY [None]
  - RASH GENERALISED [None]
  - PRURITUS [None]
